FAERS Safety Report 6687050-X (Version None)
Quarter: 2010Q2

REPORT INFORMATION
  Report Type: 
  Country: None (occurrence: None)
  Receive Date: 20100419
  Receipt Date: 20100405
  Transmission Date: 20101027
  Serious: Yes (Hospitalization, Other)
  Sender: FDA-Public Use
  Company Number: CA-ELI_LILLY_AND_COMPANY-CA201004001295

PATIENT
  Age: 62 Year
  Sex: Female

DRUGS (3)
  1. GEMZAR [Suspect]
     Indication: SMALL INTESTINE CARCINOMA
     Dosage: 1000 MG/M2, WEEKLY (1/W)
     Route: 042
  2. VINCRISTINE SULFATE [Suspect]
     Indication: SMALL INTESTINE CARCINOMA
  3. RITUXIMAB [Concomitant]
     Indication: SMALL INTESTINE CARCINOMA
     Dosage: 375 MG/M2, UNK

REACTIONS (1)
  - THROMBOTIC THROMBOCYTOPENIC PURPURA [None]
